FAERS Safety Report 9300010 (Version 1)
Quarter: 2013Q2

REPORT INFORMATION
  Report Type: Spontaneous
  Country: US (occurrence: US)
  Receive Date: 20130521
  Receipt Date: 20130521
  Transmission Date: 20140414
  Serious: Yes (Hospitalization)
  Sender: FDA-Public Use
  Company Number: US-BAYER-2013-060321

PATIENT
  Age: 47 Year
  Sex: Female
  Weight: 63.5 kg

DRUGS (3)
  1. YASMIN [Suspect]
  2. LORTAB [Concomitant]
     Indication: CHEST PAIN
  3. HYDROCODONE [Concomitant]

REACTIONS (1)
  - Pulmonary embolism [None]
